FAERS Safety Report 15641224 (Version 1)
Quarter: 2018Q4

REPORT INFORMATION
  Report Type: Spontaneous
  Country: US (occurrence: US)
  Receive Date: 20181120
  Receipt Date: 20181120
  Transmission Date: 20190205
  Serious: No
  Sender: FDA-Public Use
  Company Number: US-BAUSCH-BL-2018-030629

PATIENT
  Age: 72 Year
  Sex: Female
  Weight: 57.66 kg

DRUGS (2)
  1. BEPREVE [Suspect]
     Active Substance: BEPOTASTINE BESILATE
     Indication: FOREIGN BODY SENSATION IN EYES
     Route: 047
     Dates: start: 20180925, end: 2018
  2. ESTROGEN [Concomitant]
     Active Substance: ESTROGENS
     Indication: PRODUCT USED FOR UNKNOWN INDICATION

REACTIONS (3)
  - Device damage [Not Recovered/Not Resolved]
  - Wrong technique in product usage process [Recovered/Resolved]
  - Eye irritation [Not Recovered/Not Resolved]

NARRATIVE: CASE EVENT DATE: 2018
